FAERS Safety Report 8830838 (Version 3)
Quarter: 2012Q4

REPORT INFORMATION
  Report Type: 
  Country: US (occurrence: US)
  Receive Date: 20121008
  Receipt Date: 20121214
  Transmission Date: 20130627
  Serious: Yes (Hospitalization, Other)
  Sender: FDA-Public Use
  Company Number: US-PFIZER INC-2012246254

PATIENT
  Sex: Female

DRUGS (1)
  1. LYRICA [Suspect]
     Indication: SEIZURE
     Dosage: UNK
     Dates: start: 2012

REACTIONS (2)
  - Drug ineffective [Unknown]
  - Muscle twitching [Unknown]
